FAERS Safety Report 7725399-X (Version None)
Quarter: 2011Q3

REPORT INFORMATION
  Report Type: 
  Country: None (occurrence: None)
  Receive Date: 20110902
  Receipt Date: 20110829
  Transmission Date: 20111222
  Serious: No
  Sender: FDA-Public Use
  Company Number: US-PFIZER INC-2011201669

PATIENT
  Sex: Female

DRUGS (9)
  1. CALCIUM [Concomitant]
     Dosage: 500
  2. SUTENT [Suspect]
     Dosage: 12.5 MG, 1X/DAY, FOR 4 WEEKS
     Route: 048
  3. SENNA [Concomitant]
     Dosage: 15 MG, UNK
  4. MORPHINE SULFATE [Concomitant]
     Dosage: 30 MG, UNK
  5. OXYCONTIN [Concomitant]
     Dosage: 10 MG, UNK
  6. VICODIN ES [Concomitant]
     Dosage: 7.5-750
  7. ATIVAN [Concomitant]
     Dosage: 1 MG, UNK
  8. PREVACID [Concomitant]
     Dosage: 15 MG, UNK
  9. MILK OF MAGNESIA TAB [Concomitant]
     Dosage: UNK

REACTIONS (2)
  - VOMITING [None]
  - FATIGUE [None]
